FAERS Safety Report 7760501-5 (Version None)
Quarter: 2011Q3

REPORT INFORMATION
  Report Type: 
  Country: None (occurrence: None)
  Receive Date: 20110919
  Receipt Date: 20110914
  Transmission Date: 20111222
  Serious: Yes (Death, Hospitalization, Other)
  Sender: FDA-Public Use
  Company Number: PHHY2011HK81103

PATIENT
  Age: 29 Year
  Sex: Female

DRUGS (2)
  1. HYDROXYCHLOROQUINE SULFATE [Suspect]
     Dosage: 100 DF, UNK
     Dates: start: 20100601
  2. PREDNISOLONE [Suspect]
     Dosage: UNK
     Dates: start: 20100601

REACTIONS (12)
  - COMA SCALE ABNORMAL [None]
  - BLOOD PRESSURE INCREASED [None]
  - DEATH [None]
  - CARDIAC ARREST [None]
  - EJECTION FRACTION DECREASED [None]
  - INTENTIONAL OVERDOSE [None]
  - BODY TEMPERATURE DECREASED [None]
  - SUICIDE ATTEMPT [None]
  - SHOCK [None]
  - ELECTROCARDIOGRAM QRS COMPLEX PROLONGED [None]
  - CARDIAC FAILURE [None]
  - TACHYCARDIA [None]
